FAERS Safety Report 6192556-6 (Version None)
Quarter: 2009Q2

REPORT INFORMATION
  Report Type: 
  Country: None (occurrence: None)
  Receive Date: 20090514
  Receipt Date: 20090514
  Transmission Date: 20091009
  Serious: Yes (Hospitalization)
  Sender: FDA-Public Use
  Company Number: None

PATIENT
  Age: 52 Year
  Sex: Female
  Weight: 59 kg

DRUGS (2)
  1. CETUXIMAB [Suspect]
     Indication: SALIVARY GLAND CANCER
     Dosage: 250MG/M2 IV QW
     Route: 042
     Dates: start: 20090413
  2. CISPLATIN [Suspect]
     Dosage: 100MG/M2 IV Q3W
     Route: 042
     Dates: start: 20090512

REACTIONS (6)
  - DEHYDRATION [None]
  - HYPOPHAGIA [None]
  - HYPOTENSION [None]
  - MALNUTRITION [None]
  - MUCOSAL INFLAMMATION [None]
  - TACHYCARDIA [None]
